FAERS Safety Report 10872649 (Version 1)
Quarter: 2015Q1

REPORT INFORMATION
  Report Type: Spontaneous
  Country: DK (occurrence: DK)
  Receive Date: 20150227
  Receipt Date: 20150227
  Transmission Date: 20150721
  Serious: Yes (Other)
  Sender: FDA-Public Use
  Company Number: DK-ACCORD-028898

PATIENT
  Age: 17 Year
  Sex: Female

DRUGS (11)
  1. METHADONE [Suspect]
     Active Substance: METHADONE HYDROCHLORIDE
     Indication: NEURALGIA
     Dosage: FIXED PRESCRIPTION 1.2 MG/KG DOSE, MAX TDD 320 MG/DAY (4.8 MG/KG/DAY).
     Route: 042
  2. PARACETAMOL [Concomitant]
     Active Substance: ACETAMINOPHEN
     Indication: ANALGESIC THERAPY
     Dosage: 13 MG/KG/DAY?MAX TDD 4080 MG/KG (76.0 MG/KG/DAY)
     Route: 042
  3. OXYCODONE [Concomitant]
     Active Substance: OXYCODONE
     Indication: ANALGESIC THERAPY
     Dosage: 0.2 MG/KG/DAY?MAX TDD 40 MG/KG (0.7MG/KG/DAY)
     Route: 042
  4. GABAPENTIN. [Concomitant]
     Active Substance: GABAPENTIN
     Indication: ANALGESIC THERAPY
     Dosage: 0.9 MG/KG/DAY?MAX TDD 2400 MG/KG(20.8MG/KG/DAY)
     Route: 048
  5. AMITRIPTYLINE [Suspect]
     Active Substance: AMITRIPTYLINE
     Indication: ANALGESIC THERAPY
     Dosage: 0.9 MG/KG/DOSE.?MAX TDD 50 MG/DAY (0.9 MG/KG/DAY).
     Route: 048
  6. NORTRIPTYLINE [Suspect]
     Active Substance: NORTRIPTYLINE
     Indication: ANALGESIC THERAPY
     Dosage: 0.4 MG/KG/DOSE? MAX TDD 75 MG/DAY (1.3 MG/KG/DAY).
     Route: 048
  7. OXCARBAZEPINE. [Concomitant]
     Active Substance: OXCARBAZEPINE
     Indication: ANALGESIC THERAPY
     Dosage: 8.8 MG/KG/DAY?MAX TDD 1200 MG/KG (17.5MG/KG/DAY)
     Route: 048
  8. KETAMINE [Concomitant]
     Active Substance: KETAMINE
     Indication: ANALGESIC THERAPY
     Dosage: 0.04 MG/KG/DAY?MAX TDD 67 MG/KG (1.0 MG/KG/DAY)
     Route: 042
  9. FLUCONAZOLE. [Suspect]
     Active Substance: FLUCONAZOLE
     Indication: PRODUCT USED FOR UNKNOWN INDICATION
  10. KETOGAN [Concomitant]
     Active Substance: KETOBEMIDONE HYDROCHLORIDE
     Indication: ANALGESIC THERAPY
     Dosage: 0.14 MG/KG/DAY?MAX TDD 45 MG/KG (0.8 MG/KG/DAY)
     Route: 048
  11. TRAMADOL [Concomitant]
     Active Substance: TRAMADOL
     Indication: ANALGESIC THERAPY
     Dosage: 3.3 MG/KG/DAY?MAX TDD 200 MG/KG (3.3MG/KG/DAY)
     Route: 048

REACTIONS (2)
  - Adverse drug reaction [Unknown]
  - Electrocardiogram QT prolonged [Unknown]
